FAERS Safety Report 6880794 (Version 5)
Quarter: 2014Q2

REPORT INFORMATION
  Report Type: Spontaneous
  Country: GB (occurrence: GB)
  Receive Date: 20090114
  Receipt Date: 20140602
  Transmission Date: 20141212
  Serious: Yes (Hospitalization, Other)
  Sender: FDA-Public Use
  Company Number: GB-ELI_LILLY_AND_COMPANY-GB200901000897

PATIENT
  Sex: Female
  Weight: 1.04 kg

DRUGS (3)
  1. GEMZAR [Suspect]
     Dosage: 1000 MG/M2, ON DAY ONE AND EIGHT
     Route: 064
  2. CARBOPLATIN [Concomitant]
     Dosage: AUC 5, ON DAY 1
     Route: 064
  3. CORTICOSTEROID NOS [Concomitant]
     Dosage: UNK, UNKNOWN
     Route: 064

REACTIONS (7)
  - Premature baby [Recovered/Resolved]
  - Foetal-maternal haemorrhage [Unknown]
  - Anaemia [Unknown]
  - Lung disorder [Recovered/Resolved]
  - Lung consolidation [Unknown]
  - Staphylococcal sepsis [Recovered/Resolved]
  - Foetal exposure during pregnancy [Recovered/Resolved]
